FAERS Safety Report 4397218-3 (Version None)
Quarter: 2004Q3

REPORT INFORMATION
  Report Type: 
  Country: None (occurrence: None)
  Receive Date: 20040709
  Receipt Date: 20040629
  Transmission Date: 20050211
  Serious: Yes (Death, Hospitalization)
  Sender: FDA-Public Use
  Company Number: 04P-144-0262670-00

PATIENT
  Age: 34 Year
  Sex: Male

DRUGS (3)
  1. KALETRA [Suspect]
     Indication: HIV INFECTION
     Dosage: 3 CAPSULES, 2 IN 1 D, PER ORAL
     Route: 048
     Dates: start: 20031117, end: 20040501
  2. LAMIVUDINE [Concomitant]
  3. VIREAD [Concomitant]

REACTIONS (17)
  - BLOOD SODIUM DECREASED [None]
  - CARDIAC FAILURE [None]
  - COAGULOPATHY [None]
  - HEPATIC CIRRHOSIS [None]
  - HEPATIC ENCEPHALOPATHY [None]
  - INTERNATIONAL NORMALISED RATIO INCREASED [None]
  - LIVER DISORDER [None]
  - LYMPHADENOPATHY [None]
  - NEUTROPHIL COUNT INCREASED [None]
  - PERITONITIS [None]
  - PORTAL HYPERTENSION [None]
  - RENAL FAILURE ACUTE [None]
  - RENAL IMPAIRMENT [None]
  - SEPSIS [None]
  - THROMBOCYTOPENIA [None]
  - TUBERCULOSIS [None]
  - UPPER GASTROINTESTINAL HAEMORRHAGE [None]
